FAERS Safety Report 10239168 (Version 1)
Quarter: 2014Q2

REPORT INFORMATION
  Report Type: Spontaneous
  Country: US (occurrence: US)
  Receive Date: 20140616
  Receipt Date: 20140616
  Transmission Date: 20141212
  Serious: Yes (Hospitalization)
  Sender: FDA-Public Use
  Company Number: US-GLAXOSMITHKLINE-A1076435A

PATIENT
  Age: 65 Year
  Sex: Female

DRUGS (11)
  1. ADVAIR HFA [Suspect]
     Indication: CHRONIC OBSTRUCTIVE PULMONARY DISEASE
     Dosage: 1PUFF TWICE PER DAY
     Route: 055
     Dates: start: 201201
  2. VENTOLIN [Suspect]
     Indication: DYSPNOEA
     Dosage: 2PUFF AS REQUIRED
     Route: 055
     Dates: start: 201201
  3. METOPROLOL [Concomitant]
  4. ASPIRIN [Concomitant]
  5. LOSARTAN [Concomitant]
  6. MAGNESIUM [Concomitant]
  7. NOVOLOG [Concomitant]
  8. INSULIN GLARGINE [Concomitant]
  9. FUROSEMIDE [Concomitant]
  10. KLOR-CON [Concomitant]
  11. VITAMIN B12 [Concomitant]

REACTIONS (8)
  - Cardiac failure congestive [Not Recovered/Not Resolved]
  - Hip arthroplasty [Recovered/Resolved]
  - Blindness [Not Recovered/Not Resolved]
  - Blindness transient [Not Recovered/Not Resolved]
  - Cataract operation [Recovered/Resolved]
  - Cataract [Not Recovered/Not Resolved]
  - Visual acuity reduced [Not Recovered/Not Resolved]
  - Eye disorder [Not Recovered/Not Resolved]
